FAERS Safety Report 19490155 (Version 1)
Quarter: 2021Q3

REPORT INFORMATION
  Report Type: Spontaneous
  Country: US (occurrence: US)
  Receive Date: 20210705
  Receipt Date: 20210705
  Transmission Date: 20211014
  Serious: No
  Sender: FDA-Public Use
  Company Number: US-ORGANON-O2106USA002177

PATIENT
  Sex: Female

DRUGS (1)
  1. DULERA [Suspect]
     Active Substance: FORMOTEROL FUMARATE DIHYDRATE\MOMETASONE FUROATE
     Dosage: 2 PUFFS BY MOUTH  TWICE DAILY
     Dates: start: 2021

REACTIONS (3)
  - Treatment noncompliance [Unknown]
  - Poor quality device used [Unknown]
  - Device malfunction [Unknown]

NARRATIVE: CASE EVENT DATE: 2021
